FAERS Safety Report 11993027 (Version 1)
Quarter: 2016Q1

REPORT INFORMATION
  Report Type: Report from Study
  Country: JP (occurrence: JP)
  Receive Date: 20160203
  Receipt Date: 20160203
  Transmission Date: 20160526
  Serious: Yes (Other)
  Sender: FDA-Public Use
  Company Number: JP-ORION CORPORATION ORION PHARMA-ENT 2009-0095

PATIENT
  Age: 85 Year
  Sex: Female
  Weight: 35 kg

DRUGS (9)
  1. SYMMETREL [Concomitant]
     Active Substance: AMANTADINE HYDROCHLORIDE
     Route: 065
     Dates: start: 20071025
  2. COMTAN [Suspect]
     Active Substance: ENTACAPONE
     Indication: PARKINSON^S DISEASE
     Route: 048
     Dates: start: 20081113, end: 20090303
  3. DOPS [Concomitant]
     Active Substance: DROXIDOPA
     Route: 065
     Dates: start: 20081113
  4. PRAMIPEXOLE DIHYDROCHLORIDE. [Concomitant]
     Active Substance: PRAMIPEXOLE DIHYDROCHLORIDE
     Route: 065
     Dates: start: 20081002
  5. POLLAKISU [Concomitant]
     Route: 065
     Dates: start: 20081030
  6. COMTAN [Suspect]
     Active Substance: ENTACAPONE
     Route: 048
     Dates: start: 20090304, end: 20090403
  7. PLETAAL [Concomitant]
     Active Substance: CILOSTAZOL
     Route: 065
     Dates: start: 20080821, end: 20090403
  8. LEVODOPA-CARBIDOPA [Concomitant]
     Active Substance: CARBIDOPA\LEVODOPA
     Route: 065
     Dates: start: 20070405
  9. FP [Concomitant]
     Active Substance: SELEGILINE HYDROCHLORIDE
     Route: 065
     Dates: start: 20081002

REACTIONS (3)
  - Hallucination [Recovered/Resolved]
  - Depressed mood [Recovered/Resolved]
  - Renal impairment [Not Recovered/Not Resolved]

NARRATIVE: CASE EVENT DATE: 20081218
